FAERS Safety Report 15850872 (Version 1)
Quarter: 2019Q1

REPORT INFORMATION
  Report Type: Spontaneous
  Country: LB (occurrence: LB)
  Receive Date: 20190121
  Receipt Date: 20190121
  Transmission Date: 20190417
  Serious: Yes (Death, Hospitalization, Other)
  Sender: FDA-Public Use
  Company Number: LB-BRISTOL-MYERS SQUIBB COMPANY-BMS-2019-003998

PATIENT
  Age: 60 Year
  Sex: Male

DRUGS (1)
  1. OPDIVO [Suspect]
     Active Substance: NIVOLUMAB
     Indication: LUNG NEOPLASM MALIGNANT
     Dosage: 240 MG, Q2WK
     Route: 042

REACTIONS (4)
  - Anaemia [Fatal]
  - Malignant neoplasm progression [Fatal]
  - Fatigue [Fatal]
  - Haemorrhage [Fatal]
